FAERS Safety Report 23370226 (Version 1)
Quarter: 2024Q1

REPORT INFORMATION
  Report Type: Report from Study
  Country: DE (occurrence: DE)
  Receive Date: 20240105
  Receipt Date: 20240105
  Transmission Date: 20240410
  Serious: Yes (Hospitalization)
  Sender: FDA-Public Use
  Company Number: DE-SA-2024SA004534

PATIENT
  Age: 32 Year
  Sex: Male

DRUGS (2)
  1. EFMOROCTOCOG ALFA [Suspect]
     Active Substance: EFMOROCTOCOG ALFA
     Dosage: 3000 IU, QD
     Dates: start: 202401
  2. EFMOROCTOCOG ALFA [Suspect]
     Active Substance: EFMOROCTOCOG ALFA
     Dosage: 3000 IU, QD
     Dates: start: 202401

REACTIONS (2)
  - Ventricular extrasystoles [Unknown]
  - Palpitations [Unknown]

NARRATIVE: CASE EVENT DATE: 20240101
